FAERS Safety Report 6956078-4 (Version None)
Quarter: 2010Q3

REPORT INFORMATION
  Report Type: 
  Country: None (occurrence: None)
  Receive Date: 20100830
  Receipt Date: 20091020
  Transmission Date: 20110219
  Serious: No
  Sender: FDA-Public Use
  Company Number: US-AMGEN-KDL368672

PATIENT
  Sex: Male
  Weight: 62.2 kg

DRUGS (17)
  1. NEUPOGEN [Suspect]
     Indication: NEUTROPENIA
     Route: 058
     Dates: start: 20090511, end: 20090828
  2. LORAZEPAM [Concomitant]
  3. ZOLOFT [Concomitant]
  4. NORVIR [Concomitant]
  5. ATAZANAVIR [Concomitant]
  6. VIREAD [Concomitant]
  7. COMBIVIR [Concomitant]
  8. RIBAVIRIN [Concomitant]
  9. MAGNESIUM [Concomitant]
  10. ZINC [Concomitant]
  11. VITAMIN E [Concomitant]
  12. HERBAL SUPPLEMENT [Concomitant]
  13. CALTRATE [Concomitant]
  14. INTERFERON [Concomitant]
  15. LORAZEPAM [Concomitant]
  16. ZOLPIDEM [Concomitant]
  17. ACADIONE [Concomitant]

REACTIONS (10)
  - ABDOMINAL DISCOMFORT [None]
  - FATIGUE [None]
  - MUSCLE SPASMS [None]
  - ORAL INFECTION [None]
  - PAIN [None]
  - PERIODONTAL DISEASE [None]
  - PYREXIA [None]
  - RETCHING [None]
  - VOMITING [None]
  - WHITE BLOOD CELL COUNT INCREASED [None]
